FAERS Safety Report 5905468-7 (Version None)
Quarter: 2008Q4

REPORT INFORMATION
  Report Type: 
  Country: None (occurrence: None)
  Receive Date: 20081001
  Receipt Date: 20081001
  Transmission Date: 20090506
  Serious: Yes (Hospitalization)
  Sender: FDA-Public Use
  Company Number: None

PATIENT
  Sex: Male
  Weight: 97.8 kg

DRUGS (2)
  1. TEMOZOLOMIDE [Suspect]
     Dosage: 1210 MG
  2. DEXAMETHASONE [Concomitant]

REACTIONS (6)
  - ABASIA [None]
  - ASTHENIA [None]
  - DIARRHOEA [None]
  - FAILURE TO THRIVE [None]
  - FALL [None]
  - WHITE BLOOD CELL COUNT INCREASED [None]
